APPROVED DRUG PRODUCT: AMPICILLIN SODIUM
Active Ingredient: AMPICILLIN SODIUM
Strength: EQ 500MG BASE/VIAL
Dosage Form/Route: INJECTABLE;INJECTION
Application: A090583 | Product #003 | TE Code: AP
Applicant: SAGENT PHARMACEUTICALS INC
Approved: Nov 27, 2015 | RLD: No | RS: No | Type: RX